FAERS Safety Report 25423566 (Version 1)
Quarter: 2025Q2

REPORT INFORMATION
  Report Type: Spontaneous
  Country: FR (occurrence: FR)
  Receive Date: 20250611
  Receipt Date: 20250611
  Transmission Date: 20250717
  Serious: Yes (Hospitalization)
  Sender: MYLAN
  Company Number: None

PATIENT
  Age: 40 Year
  Sex: Female

DRUGS (8)
  1. KETOPROFEN [Suspect]
     Active Substance: KETOPROFEN
     Indication: Tendonitis
     Dates: start: 20241226, end: 20250124
  2. KETOPROFEN [Suspect]
     Active Substance: KETOPROFEN
     Route: 048
     Dates: start: 20241226, end: 20250124
  3. KETOPROFEN [Suspect]
     Active Substance: KETOPROFEN
     Route: 048
     Dates: start: 20241226, end: 20250124
  4. KETOPROFEN [Suspect]
     Active Substance: KETOPROFEN
     Dates: start: 20241226, end: 20250124
  5. IXPRIM [Concomitant]
     Active Substance: ACETAMINOPHEN\TRAMADOL HYDROCHLORIDE
     Indication: Tendonitis
     Dates: start: 20241213, end: 20250124
  6. IXPRIM [Concomitant]
     Active Substance: ACETAMINOPHEN\TRAMADOL HYDROCHLORIDE
     Route: 048
     Dates: start: 20241213, end: 20250124
  7. IXPRIM [Concomitant]
     Active Substance: ACETAMINOPHEN\TRAMADOL HYDROCHLORIDE
     Route: 048
     Dates: start: 20241213, end: 20250124
  8. IXPRIM [Concomitant]
     Active Substance: ACETAMINOPHEN\TRAMADOL HYDROCHLORIDE
     Dates: start: 20241213, end: 20250124

REACTIONS (1)
  - Splenic rupture [Recovered/Resolved with Sequelae]
